FAERS Safety Report 20589862 (Version 1)
Quarter: 2022Q1

REPORT INFORMATION
  Report Type: Spontaneous
  Country: CH (occurrence: CH)
  Receive Date: 20220314
  Receipt Date: 20220314
  Transmission Date: 20220424
  Serious: Yes (Death, Life-Threatening, Hospitalization)
  Sender: FDA-Public Use
  Company Number: None

PATIENT
  Age: 66 Year
  Sex: Female
  Weight: 62 kg

DRUGS (14)
  1. ESOMEPRAZOLE [Suspect]
     Active Substance: ESOMEPRAZOLE
     Dosage: 40 MILLIGRAM DAILY; ESOMEPRAZOLE MEPHA  (ESOMEPRAZOLE) 40 MG 1-0-0-0 ORAL USE SINCE UNKNOWN DATE
     Route: 048
  2. LISINOPRIL [Suspect]
     Active Substance: LISINOPRIL
     Dosage: 10 MILLIGRAM DAILY; LISINOPRIL MEPHA  (LISINOPRIL) 10 MG 0-0-1-0 ORAL USE SINCE UNKNOWN DATE
     Route: 048
  3. CARVEDILOL [Suspect]
     Active Substance: CARVEDILOL
     Dosage: 12.5 MILLIGRAM DAILY; CARVEDILOL MEPHA  (CARVEDILOL) 12.5 MG 1-0-0-0 ORAL USE SINCE UNKNOWN DATE
     Route: 048
  4. METAMIZOLE [Suspect]
     Active Substance: METAMIZOLE
     Indication: Analgesic therapy
     Dosage: 1000 MILLIGRAM DAILY; NOVALGIN  (METAMIZOLE) 500 MG ORAL ADMINISTRATION EVERY 12 HOURS FROM 21.01.20
     Route: 048
     Dates: start: 20210121, end: 20220107
  5. KEYTRUDA [Suspect]
     Active Substance: PEMBROLIZUMAB
     Indication: Non-small cell lung cancer
     Dosage: KEYTRUDA  (PEMBROLIZUMAB) 200 MG INTRAVENOUS ADMINISTRATION EVERY 21 DAYS FROM 13.08.2020 TO 17.12.2
     Route: 042
     Dates: start: 20200813, end: 20211217
  6. TRAZODONE HYDROCHLORIDE [Suspect]
     Active Substance: TRAZODONE HYDROCHLORIDE
     Dosage: 50 MILLIGRAM DAILY; TRITTICO  (TRAZODONE) 50 MG 0-0-1-0 ORAL USE SINCE UNKNOWN DATE
     Route: 048
  7. TORSEMIDE [Suspect]
     Active Substance: TORSEMIDE
     Dosage: 10 MILLIGRAM DAILY; TORASEMIDE SANDOZ  ECO (TORASEMIDE) 20 MG HALF-0-0-0 ORAL USE SINCE UNKNOWN DATE
     Route: 048
  8. ROSUVASTATIN CALCIUM [Concomitant]
     Active Substance: ROSUVASTATIN CALCIUM
     Dosage: 20 MILLIGRAM DAILY; ROSUVASTATIN MEPHA  (ROSUVASTATIN) 20 MG 1-0-0-0
     Route: 048
  9. FOLIC ACID [Concomitant]
     Active Substance: FOLIC ACID
     Dosage: ACIDUM FOLICUM STREULI  (FOLIC ACID) 5 MG 1X/WEEK
     Route: 048
  10. CALCIUM\CHOLECALCIFEROL [Concomitant]
     Active Substance: CALCIUM\CHOLECALCIFEROL
     Dosage: 1 DOSAGE FORMS DAILY; CALCIMAGON  D3 (CALCIUM / VITAMIN D) 500 MG/ 800 IU 1-0-0-0
     Route: 048
  11. PALEXIA [Concomitant]
     Active Substance: TAPENTADOL HYDROCHLORIDE
     Dosage: 50 MILLIGRAM DAILY; PALEXIA  (TAPENTADOL) 50 MG 0-0-0-1
     Route: 048
  12. DAFALGAN [Concomitant]
     Active Substance: ACETAMINOPHEN
     Dosage: DAFALGAN  (PARACETAMOL) 500 MG IN RESERVE; AS NECESSARY
     Route: 048
  13. ANORO ELLIPTA [Concomitant]
     Active Substance: UMECLIDINIUM BROMIDE\VILANTEROL TRIFENATATE
     Dosage: 1 DOSAGE FORMS DAILY; ANORO  ELLIPTA  (VILANTEROL, UMECLIDINIUM) 22 MCG/55 MCG INHALATION 1-0-0-0
     Route: 055
  14. ELIDEL [Concomitant]
     Active Substance: PIMECROLIMUS
     Dosage: ELIDEL  (PIMECROLIMUS) CREAM 1% TOPICAL APPLICATION , UNIT DOSE : 1 DF
     Route: 061

REACTIONS (3)
  - Agranulocytosis [Fatal]
  - Septic shock [Fatal]
  - Aplasia [Fatal]

NARRATIVE: CASE EVENT DATE: 20220107
